FAERS Safety Report 16286716 (Version 4)
Quarter: 2019Q2

REPORT INFORMATION
  Report Type: Report from Study
  Country: US (occurrence: US)
  Receive Date: 20190508
  Receipt Date: 20190617
  Transmission Date: 20190711
  Serious: Yes (Hospitalization)
  Sender: FDA-Public Use
  Company Number: PHEH2019US018778

PATIENT
  Sex: Female
  Weight: 88.45 kg

DRUGS (2)
  1. REVATIO [Concomitant]
     Active Substance: SILDENAFIL CITRATE
     Indication: PRODUCT USED FOR UNKNOWN INDICATION
     Route: 065
  2. TREPROSTINIL. [Suspect]
     Active Substance: TREPROSTINIL
     Indication: PULMONARY ARTERIAL HYPERTENSION
     Dosage: 84 NG/KG/MIN
     Route: 042
     Dates: start: 20190417

REACTIONS (7)
  - Pain in extremity [Recovering/Resolving]
  - Productive cough [Unknown]
  - Burning sensation [Unknown]
  - Pneumonia [Unknown]
  - Sputum discoloured [Unknown]
  - Fluid retention [Unknown]
  - Faeces discoloured [Unknown]
